FAERS Safety Report 26054654 (Version 2)
Quarter: 2025Q4

REPORT INFORMATION
  Report Type: Report from Study
  Country: JP (occurrence: JP)
  Receive Date: 20251117
  Receipt Date: 20251216
  Transmission Date: 20260117
  Serious: Yes (Hospitalization)
  Sender: AMGEN
  Company Number: JP-KISSEI-TV20240370_P_1

PATIENT
  Age: 27 Year
  Sex: Female

DRUGS (7)
  1. AVACOPAN [Suspect]
     Active Substance: AVACOPAN
     Indication: Microscopic polyangiitis
     Dosage: 30,MG,BID
     Route: 048
     Dates: start: 20230922
  2. PREDNISOLONE [Suspect]
     Active Substance: PREDNISOLONE
     Indication: Microscopic polyangiitis
     Dosage: 5,MG,QD
     Route: 048
     Dates: end: 20231124
  3. PREDNISOLONE [Suspect]
     Active Substance: PREDNISOLONE
     Dosage: 4,MG,QD
     Route: 048
     Dates: start: 2023, end: 20240119
  4. PREDNISOLONE [Suspect]
     Active Substance: PREDNISOLONE
     Dosage: 3,MG,QD
     Route: 048
     Dates: start: 20240120, end: 20240412
  5. PREDNISOLONE [Suspect]
     Active Substance: PREDNISOLONE
     Dosage: 2 MG, QD
     Route: 048
     Dates: start: 20240413
  6. ONEALFA [Concomitant]
     Active Substance: ALFACALCIDOL
     Indication: Osteoporosis prophylaxis
     Dosage: UNK,UNK,UNK
     Route: 048
  7. BONALON [Concomitant]
     Active Substance: ALENDRONATE SODIUM
     Indication: Osteoporosis prophylaxis
     Dosage: UNK,UNK,UNK
     Route: 048
     Dates: end: 20240628

REACTIONS (4)
  - Sinusitis [Recovered/Resolved]
  - Rhinorrhoea [Recovered/Resolved]
  - Upper-airway cough syndrome [Recovered/Resolved]
  - Abdominal pain upper [Recovered/Resolved]

NARRATIVE: CASE EVENT DATE: 20231124
